FAERS Safety Report 5272740-6 (Version None)
Quarter: 2007Q1

REPORT INFORMATION
  Report Type: 
  Country: None (occurrence: None)
  Receive Date: 20070322
  Receipt Date: 20070320
  Transmission Date: 20070707
  Serious: Yes (Other)
  Sender: FDA-Public Use
  Company Number: US-GLAXOSMITHKLINE-A0640106A

PATIENT
  Age: 63 Year
  Sex: Female
  Weight: 71.4 kg

DRUGS (8)
  1. COREG [Suspect]
     Dosage: 6.25MG TWICE PER DAY
     Route: 048
  2. POTASSIUM ACETATE [Concomitant]
  3. ALTACE [Concomitant]
  4. ACTIVELLA [Concomitant]
  5. XALATAN [Concomitant]
  6. FUROSEMIDE [Concomitant]
  7. DIGITEK [Concomitant]
  8. WARFARIN SODIUM [Concomitant]

REACTIONS (4)
  - CARDIAC FIBRILLATION [None]
  - DIABETES MELLITUS NON-INSULIN-DEPENDENT [None]
  - GLAUCOMA [None]
  - THYROID DISORDER [None]
